FAERS Safety Report 8819384 (Version 1)
Quarter: 2012Q4

REPORT INFORMATION
  Report Type: Spontaneous
  Country: US (occurrence: None)
  Receive Date: 20121003
  Receipt Date: 20121003
  Transmission Date: 20130627
  Serious: Yes (Other)
  Sender: FDA-Public Use
  Company Number: 1209-510

PATIENT
  Sex: Female

DRUGS (1)
  1. EYLEA [Suspect]
     Dates: start: 201206

REACTIONS (3)
  - Blindness [None]
  - Disease recurrence [None]
  - Unevaluable event [None]
